FAERS Safety Report 6230272-2 (Version None)
Quarter: 2009Q2

REPORT INFORMATION
  Report Type: 
  Country: None (occurrence: None)
  Receive Date: 20090615
  Receipt Date: 20090605
  Transmission Date: 20091009
  Serious: Yes (Death, Life-Threatening, Hospitalization, Other)
  Sender: FDA-Public Use
  Company Number: US-ABBOTT-07P-163-0377631-00

PATIENT
  Sex: Female
  Weight: 52.21 kg

DRUGS (14)
  1. HUMIRA [Suspect]
     Indication: RHEUMATOID ARTHRITIS
     Route: 058
     Dates: start: 20041001, end: 20070627
  2. TGAAC94 [Suspect]
     Indication: RHEUMATOID ARTHRITIS
     Route: 014
     Dates: start: 20070226, end: 20070702
  3. METHOTREXATE [Suspect]
     Indication: RHEUMATOID ARTHRITIS
     Route: 058
     Dates: start: 20040428, end: 20070701
  4. METHOTREXATE [Suspect]
     Dates: start: 19940101, end: 19990101
  5. METHOTREXATE [Suspect]
     Dates: start: 20020101
  6. PREDNISONE [Suspect]
     Indication: DRUG USE FOR UNKNOWN INDICATION
     Route: 048
     Dates: start: 20040109
  7. PREDNISONE [Suspect]
  8. PREDNISONE [Suspect]
     Dates: start: 20010101, end: 20020101
  9. PREDNISONE [Suspect]
     Dates: start: 20020101
  10. NSAID'S [Concomitant]
     Indication: RHEUMATOID ARTHRITIS
     Dates: start: 19900101, end: 20070101
  11. ETODOLAC [Concomitant]
     Indication: DRUG USE FOR UNKNOWN INDICATION
     Route: 048
     Dates: start: 20030709
  12. FOLIC ACID [Concomitant]
     Indication: DRUG USE FOR UNKNOWN INDICATION
     Route: 048
     Dates: start: 20020709
  13. ORTHO-NOVUM [Concomitant]
     Indication: DRUG USE FOR UNKNOWN INDICATION
     Route: 048
     Dates: start: 20020915
  14. ACETAMINOPHEN [Concomitant]
     Indication: DRUG USE FOR UNKNOWN INDICATION

REACTIONS (19)
  - COAGULOPATHY [None]
  - DIARRHOEA [None]
  - FATIGUE [None]
  - HAEMORRHAGE [None]
  - HEADACHE [None]
  - HEPATIC FAILURE [None]
  - HERPES SIMPLEX [None]
  - HISTOPLASMOSIS DISSEMINATED [None]
  - IMMUNE SYSTEM DISORDER [None]
  - INSOMNIA [None]
  - MULTI-ORGAN FAILURE [None]
  - MUSCULOSKELETAL STIFFNESS [None]
  - PRURITUS [None]
  - RENAL FAILURE [None]
  - RESPIRATORY FAILURE [None]
  - RETROPERITONEAL HAEMATOMA [None]
  - SEPSIS [None]
  - UNEVALUABLE EVENT [None]
  - VOMITING [None]
